FAERS Safety Report 6711806-8 (Version None)
Quarter: 2010Q2

REPORT INFORMATION
  Report Type: 
  Country: None (occurrence: None)
  Receive Date: 20100505
  Receipt Date: 20100427
  Transmission Date: 20101027
  Serious: Yes (Hospitalization, Other)
  Sender: FDA-Public Use
  Company Number: DE-JNJFOC-20100308394

PATIENT
  Sex: Female

DRUGS (4)
  1. RISPERDAL [Suspect]
     Indication: ANXIETY
     Route: 048
  2. RISPERDAL [Suspect]
     Route: 048
  3. RISPERDAL [Suspect]
     Indication: HALLUCINATION
     Route: 048
  4. RISPERDAL [Suspect]
     Route: 048

REACTIONS (10)
  - COMA [None]
  - CONSTIPATION [None]
  - ERYTHROPENIA [None]
  - HYPOCALCAEMIA [None]
  - HYPOTENSION [None]
  - HYPOTHERMIA [None]
  - MENINGIOMA [None]
  - OEDEMA [None]
  - SEPSIS [None]
  - THROMBOCYTOPENIA [None]
